FAERS Safety Report 12704687 (Version 2)
Quarter: 2016Q3

REPORT INFORMATION
  Report Type: Spontaneous
  Country: US (occurrence: US)
  Receive Date: 20160831
  Receipt Date: 20160901
  Transmission Date: 20161109
  Serious: Yes (Other)
  Sender: FDA-Public Use
  Company Number: US-ELI_LILLY_AND_COMPANY-US201503004255

PATIENT
  Sex: Male

DRUGS (11)
  1. ZYPREXA [Suspect]
     Active Substance: OLANZAPINE
     Dosage: 5 MG, AT BEDTIME
     Route: 048
  2. ZYPREXA [Suspect]
     Active Substance: OLANZAPINE
     Dosage: 7.5 MG, AT BEDTIME
     Route: 048
     Dates: start: 20080721
  3. PAXIL [Concomitant]
     Active Substance: PAROXETINE HYDROCHLORIDE
     Indication: ANXIETY
     Dosage: UNK, UNKNOWN
     Route: 065
     Dates: start: 2004
  4. COCAINE [Concomitant]
     Active Substance: COCAINE
  5. LOVASTATIN. [Concomitant]
     Active Substance: LOVASTATIN
     Dosage: 40 MG, QD
     Route: 048
  6. TRAZODONE [Concomitant]
     Active Substance: TRAZODONE HYDROCHLORIDE
     Indication: INSOMNIA
     Dosage: 50 MG, PRN
     Route: 048
     Dates: start: 20080707
  7. PAXIL [Concomitant]
     Active Substance: PAROXETINE HYDROCHLORIDE
     Indication: DEPRESSION
     Dosage: 60 MG, QD
     Route: 065
  8. PAXIL [Concomitant]
     Active Substance: PAROXETINE HYDROCHLORIDE
     Indication: OBSESSIVE-COMPULSIVE DISORDER
  9. ZYPREXA [Suspect]
     Active Substance: OLANZAPINE
     Indication: PSYCHOTIC DISORDER
     Dosage: 2.5 MG, AT BEDTIME
     Route: 048
     Dates: start: 20080211
  10. ZYPREXA [Suspect]
     Active Substance: OLANZAPINE
     Dosage: 10 MG, AT BEDTIME
     Route: 048
  11. ZYPREXA [Suspect]
     Active Substance: OLANZAPINE
     Dosage: 20 MG, AT BEDTIME
     Route: 048

REACTIONS (9)
  - Memory impairment [Unknown]
  - Binge eating [Unknown]
  - Gynaecomastia [Unknown]
  - Bipolar disorder [Unknown]
  - Weight increased [Unknown]
  - Road traffic accident [Unknown]
  - Obsessive-compulsive disorder [Unknown]
  - Hyperlipidaemia [Unknown]
  - Anxiety [Unknown]
